FAERS Safety Report 10280898 (Version 1)
Quarter: 2014Q3

REPORT INFORMATION
  Report Type: Spontaneous
  Country: US (occurrence: None)
  Receive Date: 20140702
  Receipt Date: 20140702
  Transmission Date: 20150326
  Serious: Yes (Death)
  Sender: FDA-Public Use
  Company Number: None

PATIENT
  Age: 02 Year
  Sex: Male
  Weight: 12.02 kg

DRUGS (1)
  1. TYLENOL WITH CODEINE [Suspect]
     Active Substance: ACETAMINOPHEN\CODEINE PHOSPHATE
     Indication: PROCEDURAL PAIN
     Dosage: UNK DOSE TAKEN BY MOUTH
     Route: 048
     Dates: start: 20130619, end: 20130619

REACTIONS (3)
  - Lethargy [None]
  - Listless [None]
  - Cardio-respiratory arrest [None]

NARRATIVE: CASE EVENT DATE: 20130619
